FAERS Safety Report 9524005 (Version 4)
Quarter: 2014Q1

REPORT INFORMATION
  Report Type: Report from Study
  Country: BR (occurrence: BR)
  Receive Date: 20130916
  Receipt Date: 20140116
  Transmission Date: 20141002
  Serious: Yes (Other)
  Sender: FDA-Public Use
  Company Number: BR-ROCHE-1262015

PATIENT
  Sex: Male
  Weight: 62 kg

DRUGS (5)
  1. ACTEMRA [Suspect]
     Indication: RHEUMATOID ARTHRITIS
     Route: 065
     Dates: start: 20130612
  2. FOLIC ACID [Concomitant]
  3. METHOTREXATE [Concomitant]
  4. NIMESULIDE [Concomitant]
  5. OMEPRAZOLE [Concomitant]

REACTIONS (2)
  - Vocal cord disorder [Recovered/Resolved]
  - Dysphonia [Unknown]
